FAERS Safety Report 26092198 (Version 1)
Quarter: 2025Q4

REPORT INFORMATION
  Report Type: Spontaneous
  Country: GB (occurrence: GB)
  Receive Date: 20251126
  Receipt Date: 20251126
  Transmission Date: 20260117
  Serious: Yes (Other)
  Sender: CHATTEM
  Company Number: None

PATIENT
  Age: 18 Year
  Sex: Male
  Weight: 65 kg

DRUGS (9)
  1. FEXOFENADINE [Suspect]
     Active Substance: FEXOFENADINE HYDROCHLORIDE
     Indication: Urticaria
     Dosage: 180MG OD
     Route: 065
     Dates: start: 20251110, end: 20251110
  2. CLARITHROMYCIN, penicillin, salbutamol, paracetamol [Concomitant]
     Indication: Streptococcal infection
     Route: 065
     Dates: start: 20251107, end: 20251119
  3. CLARITHROMYCIN, penicillin, salbutamol, paracetamol [Concomitant]
     Indication: Diphtheria
  4. CLARITHROMYCIN, penicillin, salbutamol, paracetamol [Concomitant]
     Indication: Streptococcal infection
     Route: 065
     Dates: start: 20251107, end: 20251119
  5. CLARITHROMYCIN, penicillin, salbutamol, paracetamol [Concomitant]
     Indication: Diphtheria
  6. CLARITHROMYCIN, penicillin, salbutamol, paracetamol [Concomitant]
     Indication: Streptococcal infection
     Route: 065
     Dates: start: 20251107, end: 20251119
  7. CLARITHROMYCIN, penicillin, salbutamol, paracetamol [Concomitant]
     Indication: Diphtheria
  8. CLARITHROMYCIN, penicillin, salbutamol, paracetamol [Concomitant]
     Indication: Streptococcal infection
     Route: 065
     Dates: start: 20251107, end: 20251119
  9. CLARITHROMYCIN, penicillin, salbutamol, paracetamol [Concomitant]
     Indication: Diphtheria

REACTIONS (5)
  - Heart rate [Recovered/Resolved]
  - Paralysis [Unknown]
  - Paraesthesia [Unknown]
  - Hypoaesthesia [Unknown]
  - Hypoaesthesia [Unknown]

NARRATIVE: CASE EVENT DATE: 20251110
